FAERS Safety Report 20004140 (Version 3)
Quarter: 2022Q3

REPORT INFORMATION
  Report Type: Report from Study
  Country: US (occurrence: US)
  Receive Date: 20211028
  Receipt Date: 20220723
  Transmission Date: 20221027
  Serious: Yes (Hospitalization)
  Sender: FDA-Public Use
  Company Number: US-NOVARTISPH-NVSC2021US246036

PATIENT
  Sex: Male

DRUGS (1)
  1. ENTRESTO [Suspect]
     Active Substance: SACUBITRIL\VALSARTAN
     Indication: Product used for unknown indication
     Dosage: 1 DOSAGE FORM (24/26 MG)
     Route: 065

REACTIONS (6)
  - Atrial fibrillation [Unknown]
  - Gastrooesophageal reflux disease [Unknown]
  - Device malfunction [Unknown]
  - Weight decreased [Unknown]
  - Depression [Unknown]
  - Decreased activity [Unknown]
